FAERS Safety Report 4870019-5 (Version None)
Quarter: 2005Q4

REPORT INFORMATION
  Report Type: 
  Country: None (occurrence: None)
  Receive Date: 20051223
  Receipt Date: 20051212
  Transmission Date: 20060501
  Serious: Yes (Hospitalization)
  Sender: FDA-Public Use
  Company Number: USA041082117

PATIENT
  Age: 40 Year
  Sex: Male
  Weight: 113.6 kg

DRUGS (3)
  1. CYMBALTA [Suspect]
     Indication: DEPRESSION
     Dosage: 60 MG DAILY (1/D), ORAL
     Route: 048
     Dates: start: 20040816, end: 20041022
  2. LUVOX [Concomitant]
  3. FLONASE [Concomitant]

REACTIONS (20)
  - ALANINE AMINOTRANSFERASE INCREASED [None]
  - AMMONIA INCREASED [None]
  - ASPARTATE AMINOTRANSFERASE INCREASED [None]
  - BLOOD IRON INCREASED [None]
  - CERULOPLASMIN INCREASED [None]
  - CHOLESTASIS [None]
  - CONFUSIONAL STATE [None]
  - DIFFICULTY IN WALKING [None]
  - GAIT DISTURBANCE [None]
  - HALLUCINATION, VISUAL [None]
  - HEPATIC FIBROSIS [None]
  - INJURY [None]
  - LIVER DISORDER [None]
  - LYMPHOCYTE PERCENTAGE INCREASED [None]
  - MALAISE [None]
  - NEUTROPHIL PERCENTAGE INCREASED [None]
  - SERUM FERRITIN INCREASED [None]
  - SLEEP DISORDER [None]
  - URTICARIA [None]
  - WEIGHT DECREASED [None]
